FAERS Safety Report 14913800 (Version 1)
Quarter: 2018Q2

REPORT INFORMATION
  Report Type: Spontaneous
  Country: DE (occurrence: DE)
  Receive Date: 20180518
  Receipt Date: 20180518
  Transmission Date: 20180711
  Serious: Yes (Other)
  Sender: FDA-Public Use
  Company Number: PHHY2018DE002735

PATIENT
  Age: 46 Year
  Sex: Male
  Weight: 124 kg

DRUGS (5)
  1. HUMIRA [Suspect]
     Active Substance: ADALIMUMAB
     Indication: PRODUCT USED FOR UNKNOWN INDICATION
     Dosage: UNK
     Route: 058
     Dates: start: 201211, end: 201306
  2. COSENTYX [Suspect]
     Active Substance: SECUKINUMAB
     Indication: PRODUCT USED FOR UNKNOWN INDICATION
     Dosage: 300 MG, Q4W
     Route: 058
     Dates: start: 201512
  3. STELARA [Suspect]
     Active Substance: USTEKINUMAB
     Indication: PSORIASIS
     Dosage: 90 MG, EVERY 12 WEEKS
     Route: 058
     Dates: start: 20130723, end: 201510
  4. FUMADERM [Suspect]
     Active Substance: CALCIUM MONOETHYLFUMARATE\DIMETHYL FUMARATE\MAGNESIUM MONOETHYLFUMARATE\ZINC MONOETHYLFUMARATE
     Indication: PRODUCT USED FOR UNKNOWN INDICATION
     Dosage: UNK
     Route: 048
     Dates: start: 201207, end: 201210
  5. STELARA [Suspect]
     Active Substance: USTEKINUMAB
     Dosage: 90 MG, EVERY 8 WEEKS
     Route: 058
     Dates: start: 201510

REACTIONS (1)
  - Lip and/or oral cavity cancer stage 0 [Recovered/Resolved]

NARRATIVE: CASE EVENT DATE: 201511
